FAERS Safety Report 10176058 (Version 2)
Quarter: 2014Q2

REPORT INFORMATION
  Report Type: Spontaneous
  Country: US (occurrence: US)
  Receive Date: 20140516
  Receipt Date: 20140516
  Transmission Date: 20141212
  Serious: Yes (Other)
  Sender: FDA-Public Use
  Company Number: US-ROCHE-1396510

PATIENT
  Age: 71 Year
  Sex: Male

DRUGS (2)
  1. AVASTIN [Suspect]
     Indication: GLIOBLASTOMA MULTIFORME
     Route: 065
     Dates: start: 201401
  2. TEMODAR [Concomitant]
     Route: 065

REACTIONS (7)
  - Rash [Unknown]
  - Haemorrhage subcutaneous [Unknown]
  - Infusion site bruising [Unknown]
  - Hypertension [Recovering/Resolving]
  - Epistaxis [Unknown]
  - Cough [Unknown]
  - Headache [Unknown]
